FAERS Safety Report 8921863 (Version 1)
Quarter: 2012Q4

REPORT INFORMATION
  Report Type: 
  Country: GB (occurrence: GB)
  Receive Date: 20121121
  Receipt Date: 20121121
  Transmission Date: 20130627
  Serious: Yes (Other)
  Sender: FDA-Public Use
  Company Number: GB-WATSON-2012-19756

PATIENT
  Sex: Female

DRUGS (1)
  1. SIMVASTATIN (UNKNOWN) [Suspect]
     Indication: PRODUCT USED FOR UNKNOWN INDICATION
     Dosage: Unknown
     Route: 065

REACTIONS (6)
  - Anaemia [Unknown]
  - Muscle atrophy [Unknown]
  - Gait disturbance [Unknown]
  - Urinary tract infection [Unknown]
  - Weight decreased [Unknown]
  - Diverticulitis intestinal haemorrhagic [Unknown]
